FAERS Safety Report 9283159 (Version 1)
Quarter: 2013Q2

REPORT INFORMATION
  Report Type: Other
  Country: US (occurrence: US)
  Receive Date: 20130510
  Receipt Date: 20130510
  Transmission Date: 20140414
  Serious: Yes (Other)
  Sender: FDA-Public Use
  Company Number: US-PURDUE-USA-2013-0101881

PATIENT
  Age: 40 Year
  Sex: Female

DRUGS (1)
  1. CHLORHEXIDINE GLUCONATE (SIMILAR TO NDA 19-125) [Suspect]
     Indication: PREOPERATIVE CARE
     Route: 061

REACTIONS (1)
  - Dermatitis contact [Recovered/Resolved]
